FAERS Safety Report 11059033 (Version 7)
Quarter: 2015Q3

REPORT INFORMATION
  Report Type: Spontaneous
  Country: JP (occurrence: JP)
  Receive Date: 20150423
  Receipt Date: 20150910
  Transmission Date: 20151125
  Serious: Yes (Other)
  Sender: FDA-Public Use
  Company Number: JP-PFIZER INC-2015138644

PATIENT
  Age: 20 Year
  Sex: Male
  Weight: 65 kg

DRUGS (6)
  1. REBAMIPIDE [Concomitant]
     Active Substance: REBAMIPIDE
     Dosage: 100 MG
     Dates: start: 20150405, end: 20150422
  2. CALONAL [Suspect]
     Active Substance: ACETAMINOPHEN
     Dosage: 900 MG, 2X/DAY
     Route: 048
     Dates: start: 20150406, end: 20150410
  3. LOXOPROFEN [Concomitant]
     Active Substance: LOXOPROFEN
     Dosage: 60 MG
     Dates: start: 20150405, end: 20150405
  4. CELECOX [Suspect]
     Active Substance: CELECOXIB
     Indication: TIBIA FRACTURE
     Dosage: 200 MG, 2X/DAY
     Route: 048
     Dates: start: 20150406, end: 20150414
  5. SULBACILLIN [Concomitant]
     Active Substance: AMPICILLIN SODIUM\SULBACTAM SODIUM
     Dosage: 1.5 G
     Dates: start: 20150407, end: 20150410
  6. CALONAL [Suspect]
     Active Substance: ACETAMINOPHEN
     Indication: TIBIA FRACTURE
     Dosage: 600 MG, 1X/DAY
     Route: 048
     Dates: start: 20150405, end: 20150405

REACTIONS (3)
  - Blood creatine phosphokinase increased [Recovered/Resolved]
  - Intentional product use issue [Unknown]
  - Rash [Recovered/Resolved]

NARRATIVE: CASE EVENT DATE: 20150406
